FAERS Safety Report 15397375 (Version 1)
Quarter: 2018Q4

REPORT INFORMATION
  Report Type: Report from Study
  Country: US (occurrence: US)
  Receive Date: 20180918
  Receipt Date: 20180918
  Transmission Date: 20190204
  Serious: Yes (Hospitalization, Other)
  Sender: FDA-Public Use
  Company Number: US-PFIZER INC-2018371163

PATIENT

DRUGS (5)
  1. OXALIPLATIN. [Suspect]
     Active Substance: OXALIPLATIN
     Indication: HEPATOCELLULAR CARCINOMA
     Dosage: 85 MG/M2, BIWEEKLY (ON DAY 1)
     Route: 042
  2. CALCIUM FOLINATE [Suspect]
     Active Substance: LEUCOVORIN CALCIUM
     Indication: HEPATOCELLULAR CARCINOMA
     Dosage: 400 MG/M2, BIWEEKLY (OVER 2 H ON DAY 1)
     Route: 042
  3. 5-FLUOROURACIL [FLUOROURACIL] [Suspect]
     Active Substance: FLUOROURACIL
     Dosage: 1200 MG/M2, BIWEEKLY (OVER 24 H FOR 2 DAYS)
     Route: 040
  4. PEGYLATED ARGININE DEIMINASE [Suspect]
     Active Substance: PEGARGIMINASE
     Indication: HEPATOCELLULAR CARCINOMA
     Dosage: 36 MG/M2, WEEKLY
     Route: 030
  5. 5-FLUOROURACIL [FLUOROURACIL] [Suspect]
     Active Substance: FLUOROURACIL
     Indication: HEPATOCELLULAR CARCINOMA
     Dosage: 400 MG/M2, BIWEEKLY (ON DAY 1)
     Route: 040

REACTIONS (1)
  - Encephalopathy [Recovered/Resolved]
